FAERS Safety Report 20538897 (Version 2)
Quarter: 2023Q1

REPORT INFORMATION
  Report Type: Report from Study
  Country: US (occurrence: US)
  Receive Date: 20220302
  Receipt Date: 20230118
  Transmission Date: 20230418
  Serious: Yes (Other)
  Sender: FDA-Public Use
  Company Number: US-JAZZ-2022-US-005163

PATIENT
  Sex: Male

DRUGS (15)
  1. XYREM [Suspect]
     Active Substance: SODIUM OXYBATE
     Indication: Hypersomnia
     Dosage: UNK
  2. VITAMIN B6 [Concomitant]
     Active Substance: PYRIDOXINE HYDROCHLORIDE
     Dosage: 0000
     Dates: start: 20151012
  3. NASACORT AQ [Concomitant]
     Active Substance: TRIAMCINOLONE ACETONIDE
     Dosage: 0020
     Dates: start: 20151012
  4. ZYRTEC [Concomitant]
     Active Substance: CETIRIZINE HYDROCHLORIDE
     Dosage: UNK
     Dates: start: 20151012
  5. ZYRTEC [Concomitant]
     Active Substance: CETIRIZINE HYDROCHLORIDE
     Dosage: UNK
     Dates: start: 20211110
  6. VITAMIN D3 [Concomitant]
     Active Substance: CHOLECALCIFEROL
     Dosage: 0010
     Dates: start: 20151012
  7. EPIPEN [Concomitant]
     Active Substance: EPINEPHRINE
     Dosage: 0000
     Dates: start: 20020801
  8. MECLIZINE [Concomitant]
     Active Substance: MECLIZINE HYDROCHLORIDE
     Dosage: 0000
     Dates: start: 20050801
  9. MONTELUKAST SODIUM [Concomitant]
     Active Substance: MONTELUKAST SODIUM
     Dosage: 0000
     Dates: start: 20090901
  10. PROBIOTIC BLEND [Concomitant]
     Dosage: 0000
     Dates: start: 20210324
  11. ZOFRAN [Concomitant]
     Active Substance: ONDANSETRON HYDROCHLORIDE
     Dosage: 0000
     Dates: start: 20210215
  12. NASACORT ALLERGY 24HR [Concomitant]
     Active Substance: TRIAMCINOLONE ACETONIDE
     Dosage: 0000
     Dates: start: 20211110
  13. VITAMIN C [Concomitant]
     Active Substance: ASCORBIC ACID
     Dosage: 0000
     Dates: start: 20211110
  14. ZINC [Concomitant]
     Active Substance: ZINC
     Dosage: 0000
     Dates: start: 20211110
  15. FISH OIL [Concomitant]
     Active Substance: FISH OIL
     Dosage: 0000
     Dates: start: 20200217

REACTIONS (6)
  - Peptic ulcer [Unknown]
  - Palpitations [Unknown]
  - Rash [Recovered/Resolved]
  - Nausea [Unknown]
  - Product administration interrupted [Unknown]
  - Off label use [Unknown]
